FAERS Safety Report 21898287 (Version 1)
Quarter: 2023Q1

REPORT INFORMATION
  Report Type: Spontaneous
  Country: US (occurrence: None)
  Receive Date: 20230121
  Receipt Date: 20230121
  Transmission Date: 20230417
  Serious: Yes (Hospitalization)
  Sender: FDA-Public Use
  Company Number: None

PATIENT
  Sex: Female
  Weight: 65.32 kg

DRUGS (16)
  1. VERZENIO [Suspect]
     Active Substance: ABEMACICLIB
     Indication: Breast cancer female
     Dosage: FREQUENCY : TWICE A DAY;?
     Route: 048
     Dates: start: 20221209
  2. AMOXICILLIN [Concomitant]
     Active Substance: AMOXICILLIN
  3. CALCIUM [Concomitant]
     Active Substance: CALCIUM
  4. CRANBERRY [Concomitant]
     Active Substance: CRANBERRY
  5. ELIQUIS [Concomitant]
     Active Substance: APIXABAN
  6. GABAPENTIN [Concomitant]
     Active Substance: GABAPENTIN
  7. GEMCITABINE [Concomitant]
     Active Substance: GEMCITABINE
  8. LOVASTATIN [Concomitant]
     Active Substance: LOVASTATIN
  9. MOVANTIK [Concomitant]
     Active Substance: NALOXEGOL OXALATE
  10. Multivitamin [Concomitant]
  11. ONDANSETRON [Concomitant]
  12. OXYCODONE AND ACETAMINOPHEN [Concomitant]
     Active Substance: ACETAMINOPHEN\OXYCODONE HYDROCHLORIDE
  13. PROCHLORPERAZINE [Concomitant]
  14. TYLENOL EXTRA STRENGTH [Concomitant]
     Active Substance: ACETAMINOPHEN
  15. VITAMIN D3 [Concomitant]
     Active Substance: CHOLECALCIFEROL
  16. XGEVA [Concomitant]
     Active Substance: DENOSUMAB

REACTIONS (1)
  - Bone cancer metastatic [None]
